FAERS Safety Report 21997310 (Version 1)
Quarter: 2023Q1

REPORT INFORMATION
  Report Type: Spontaneous
  Country: FR (occurrence: FR)
  Receive Date: 20230216
  Receipt Date: 20230216
  Transmission Date: 20230418
  Serious: Yes (Other)
  Sender: FDA-Public Use
  Company Number: FR-TAKEDA-2023TUS015201

PATIENT
  Age: 88 Year

DRUGS (7)
  1. VONICOG ALFA [Suspect]
     Active Substance: VONICOG ALFA
     Indication: Von Willebrand^s disease
     Dosage: 50 INTERNATIONAL UNIT/KILOGRAM, QD
     Route: 065
  2. VONICOG ALFA [Suspect]
     Active Substance: VONICOG ALFA
     Dosage: 20 INTERNATIONAL UNIT/KILOGRAM, 3/WEEK
     Route: 065
  3. CHLORAMBUCIL [Concomitant]
     Active Substance: CHLORAMBUCIL
  4. RITUXIMAB [Concomitant]
     Active Substance: RITUXIMAB
  5. CYCLOPHOSPHAMIDE [Concomitant]
     Active Substance: CYCLOPHOSPHAMIDE
  6. BENDAMUSTIN ACCORD [Concomitant]
  7. BORTEZOMIB [Concomitant]
     Active Substance: BORTEZOMIB

REACTIONS (4)
  - Haemorrhage [Unknown]
  - Squamous cell carcinoma [Unknown]
  - Haematoma [Unknown]
  - Off label use [Unknown]
